FAERS Safety Report 7208448-7 (Version None)
Quarter: 2011Q1

REPORT INFORMATION
  Report Type: 
  Country: None (occurrence: None)
  Receive Date: 20110104
  Receipt Date: 20101228
  Transmission Date: 20110831
  Serious: Yes (Hospitalization)
  Sender: FDA-Public Use
  Company Number: FR-PFIZER INC-2010179849

PATIENT
  Age: 74 Year
  Sex: Male

DRUGS (5)
  1. TRIFLUCAN [Suspect]
     Indication: BRONCHITIS
     Dosage: 100 MG, 1X/DAY
     Route: 048
     Dates: start: 20101106, end: 20101113
  2. ROCEPHIN [Suspect]
     Indication: URINARY TRACT INFECTION
     Dosage: 1 G, 1X/DAY
     Route: 042
     Dates: start: 20101106, end: 20101113
  3. NEXIUM [Suspect]
     Dosage: 40 MG, 1X/DAY
     Route: 048
     Dates: start: 20101103, end: 20101117
  4. DALACINE [Suspect]
     Indication: STAPHYLOCOCCAL INFECTION
     Dosage: 600 MG, 4X/DAY
     Route: 042
     Dates: start: 20101113, end: 20101117
  5. CALCIPARINE [Suspect]
     Dosage: 2500 IU, 2X/DAY
     Route: 042
     Dates: start: 20101103, end: 20101117

REACTIONS (5)
  - EOSINOPHILIA [None]
  - EYELID OEDEMA [None]
  - FACE OEDEMA [None]
  - RASH MACULO-PAPULAR [None]
  - RASH VESICULAR [None]
